FAERS Safety Report 8765285 (Version 1)
Quarter: 2012Q4

REPORT INFORMATION
  Report Type: 
  Country: US (occurrence: US)
  Receive Date: 20120831
  Receipt Date: 20120831
  Transmission Date: 20130627
  Serious: No
  Sender: FDA-Public Use
  Company Number: US-ASTRAZENECA-2011SE57742

PATIENT
  Age: 31 Year
  Sex: Female
  Weight: 127 kg

DRUGS (4)
  1. SYMBICORT PMDI [Suspect]
     Indication: ASTHMA
     Dosage: 160/4.5, TWO PUFFS DAILY
     Route: 055
  2. SINGULAIR [Concomitant]
     Indication: ASTHMA
     Route: 048
  3. SPIRONOLACTONE [Concomitant]
     Indication: HYPERTENSION
     Route: 048
  4. TRAZADONE [Concomitant]
     Indication: INSOMNIA

REACTIONS (2)
  - Asthma [Unknown]
  - Drug dose omission [Unknown]
